FAERS Safety Report 9479447 (Version 1)
Quarter: 2013Q3

REPORT INFORMATION
  Report Type: Spontaneous
  Country: US (occurrence: US)
  Receive Date: 20130827
  Receipt Date: 20130827
  Transmission Date: 20140515
  Serious: No
  Sender: FDA-Public Use
  Company Number: US-PFIZER INC-2013246260

PATIENT
  Sex: Male

DRUGS (3)
  1. ADVIL [Suspect]
     Dosage: 200 MG, UNK
  2. ADVIL [Suspect]
     Dosage: 400 MG (TWO 200MG TABLETS), ONCE
  3. ADVIL [Suspect]
     Dosage: 400 MG, UNK

REACTIONS (2)
  - Cough [Unknown]
  - Feeling jittery [Unknown]
